FAERS Safety Report 5609285-7 (Version None)
Quarter: 2008Q1

REPORT INFORMATION
  Report Type: 
  Country: None (occurrence: None)
  Receive Date: 20080131
  Receipt Date: 20080125
  Transmission Date: 20080703
  Serious: Yes (Other)
  Sender: FDA-Public Use
  Company Number: US-ELI_LILLY_AND_COMPANY-US200801001704

PATIENT
  Age: 65 Year
  Sex: Female

DRUGS (3)
  1. EVISTA [Suspect]
     Dosage: 60 MG, DAILY (1/D)
  2. VITAMIN D [Concomitant]
  3. CALCIUM GLUCONATE [Concomitant]

REACTIONS (2)
  - BONE DENSITY DECREASED [None]
  - BREAST CANCER IN SITU [None]
